FAERS Safety Report 14258807 (Version 4)
Quarter: 2018Q4

REPORT INFORMATION
  Report Type: Report from Study
  Country: CZ (occurrence: CZ)
  Receive Date: 20171207
  Receipt Date: 20181008
  Transmission Date: 20190204
  Serious: Yes (Life-Threatening, Hospitalization, Other)
  Sender: FDA-Public Use
  Company Number: CZ-BRISTOL-MYERS SQUIBB COMPANY-BMS-2017-110364

PATIENT
  Age: 55 Year
  Sex: Male

DRUGS (1)
  1. NIVOLUMAB [Suspect]
     Active Substance: NIVOLUMAB
     Indication: NON-SMALL CELL LUNG CANCER
     Dosage: 3 MG/KG, Q3WK
     Route: 065
     Dates: start: 20151223, end: 20161007

REACTIONS (6)
  - Pneumonitis [Recovered/Resolved]
  - Epilepsy [Recovered/Resolved]
  - Central nervous system lesion [Unknown]
  - Malignant neoplasm progression [Recovering/Resolving]
  - Altered state of consciousness [Recovered/Resolved]
  - Quadriparesis [Recovered/Resolved]

NARRATIVE: CASE EVENT DATE: 20151231
